FAERS Safety Report 8889841 (Version 1)
Quarter: 2012Q4

REPORT INFORMATION
  Report Type: Spontaneous
  Country: US (occurrence: None)
  Receive Date: 20121105
  Receipt Date: 20121105
  Transmission Date: 20130627
  Serious: Yes (Other)
  Sender: FDA-Public Use
  Company Number: None

PATIENT
  Age: 7 Month
  Sex: Male
  Weight: 10.89 kg

DRUGS (1)
  1. VITAMIN D [Suspect]
     Indication: BREAST FEEDING
     Dosage: 1 gtt daily po
     Route: 048
     Dates: start: 20120907, end: 20121029

REACTIONS (3)
  - Accidental overdose [None]
  - Drug label confusion [None]
  - Incorrect dose administered [None]
